FAERS Safety Report 4347996-4 (Version None)
Quarter: 2004Q2

REPORT INFORMATION
  Report Type: 
  Country: None (occurrence: None)
  Receive Date: 20040422
  Receipt Date: 20040303
  Transmission Date: 20050107
  Serious: Yes (Hospitalization, Other)
  Sender: FDA-Public Use
  Company Number: KII-2004-0009590

PATIENT
  Age: 40 Year
  Sex: Female

DRUGS (4)
  1. MORPHINE SULFATE [Suspect]
  2. PHENOTHIAZINE (PHENOTHIAZINE) [Suspect]
  3. ANTIPSCYHOTICS () [Suspect]
  4. BENZODIAZEPINE DERIVATIVES() [Suspect]

REACTIONS (11)
  - ACIDOSIS [None]
  - ASPIRATION [None]
  - BLOOD PRESSURE INCREASED [None]
  - BODY TEMPERATURE DECREASED [None]
  - DEPRESSED LEVEL OF CONSCIOUSNESS [None]
  - HEART RATE INCREASED [None]
  - MULTIPLE DRUG OVERDOSE [None]
  - PNEUMONIA [None]
  - PUPILLARY REFLEX IMPAIRED [None]
  - RHONCHI [None]
  - VOMITING [None]
